FAERS Safety Report 15088072 (Version 1)
Quarter: 2018Q2

REPORT INFORMATION
  Report Type: Report from Study
  Country: US (occurrence: US)
  Receive Date: 20180629
  Receipt Date: 20180629
  Transmission Date: 20180711
  Serious: Yes (Other)
  Sender: FDA-Public Use
  Company Number: US-UCBSA-2018028282

PATIENT
  Sex: Male

DRUGS (2)
  1. LEVETIRACETAM. [Suspect]
     Active Substance: LEVETIRACETAM
     Indication: PRODUCT USED FOR UNKNOWN INDICATION
     Dosage: UNK
  2. LEVETIRACETAM. [Suspect]
     Active Substance: LEVETIRACETAM
     Dosage: HIGHEST DOSE

REACTIONS (6)
  - Generalised tonic-clonic seizure [Recovered/Resolved]
  - Petit mal epilepsy [Recovered/Resolved]
  - Focal dyscognitive seizures [Recovered/Resolved]
  - Seizure [Not Recovered/Not Resolved]
  - Cortical dysplasia [Unknown]
  - Myoclonic epilepsy [Recovered/Resolved]
